FAERS Safety Report 18270820 (Version 1)
Quarter: 2020Q3

REPORT INFORMATION
  Report Type: Spontaneous
  Country: US (occurrence: US)
  Receive Date: 20200916
  Receipt Date: 20200916
  Transmission Date: 20201103
  Serious: No
  Sender: FDA-Public Use
  Company Number: US-TEVA-2020-US-1827580

PATIENT
  Sex: Male

DRUGS (2)
  1. ALPRAZOLAM TEVA [Suspect]
     Active Substance: ALPRAZOLAM
     Dates: start: 2020
  2. ALPRAZOLAM TEVA [Suspect]
     Active Substance: ALPRAZOLAM
     Route: 065
     Dates: start: 20200904

REACTIONS (5)
  - Product taste abnormal [Unknown]
  - Wrong technique in product usage process [Unknown]
  - Product physical issue [Unknown]
  - Product odour abnormal [Unknown]
  - Headache [Unknown]

NARRATIVE: CASE EVENT DATE: 20200904
